FAERS Safety Report 9481789 (Version 1)
Quarter: 2013Q3

REPORT INFORMATION
  Report Type: Spontaneous
  Country: CA (occurrence: CA)
  Receive Date: 20130828
  Receipt Date: 20130828
  Transmission Date: 20140515
  Serious: Yes (Hospitalization)
  Sender: FDA-Public Use
  Company Number: CA-AMGEN-KDL232806

PATIENT
  Age: 68 Year
  Sex: Female

DRUGS (3)
  1. ENBREL [Suspect]
     Indication: RHEUMATOID ARTHRITIS
     Dosage: 25 MG, 2 TIMES/WK
     Route: 058
     Dates: start: 20040616, end: 20050701
  2. HYDROMORPHONE HYDROCHLORIDE [Concomitant]
  3. UNSPECIFIED MEDICATION [Concomitant]

REACTIONS (10)
  - Coma [Unknown]
  - Loss of consciousness [Unknown]
  - Acute pulmonary oedema [Unknown]
  - Cellulitis [Unknown]
  - Oedema peripheral [Unknown]
  - Weight decreased [Unknown]
  - Abasia [Not Recovered/Not Resolved]
  - Wheelchair user [Not Recovered/Not Resolved]
  - Pain [Not Recovered/Not Resolved]
  - Cardiac disorder [Not Recovered/Not Resolved]
